FAERS Safety Report 6521245-0 (Version None)
Quarter: 2009Q4

REPORT INFORMATION
  Report Type: 
  Country: None (occurrence: None)
  Receive Date: 20091230
  Receipt Date: 20091215
  Transmission Date: 20100525
  Serious: Yes (Hospitalization)
  Sender: FDA-Public Use
  Company Number: FR-BIOGENIDEC-2009BI041142

PATIENT
  Age: 45 Year
  Sex: Female
  Weight: 108 kg

DRUGS (4)
  1. TYSABRI [Suspect]
     Indication: MULTIPLE SCLEROSIS
     Route: 042
     Dates: start: 20081103
  2. RIVOTRIL [Concomitant]
     Indication: MUSCLE RELAXANT THERAPY
     Route: 048
     Dates: start: 20070101
  3. NEXIUM [Concomitant]
     Route: 048
     Dates: start: 20090701, end: 20090901
  4. FLUOXETINE [Concomitant]
     Indication: DEPRESSION
     Route: 048
     Dates: start: 20090401

REACTIONS (1)
  - CHOLECYSTITIS [None]
